FAERS Safety Report 5092278-9 (Version None)
Quarter: 2006Q3

REPORT INFORMATION
  Report Type: 
  Country: None (occurrence: None)
  Receive Date: 20060828
  Receipt Date: 20060828
  Transmission Date: 20061208
  Serious: Yes (Hospitalization)
  Sender: FDA-Public Use
  Company Number: None

PATIENT
  Sex: Male
  Weight: 109.9066 kg

DRUGS (16)
  1. PAMIDRONATE DISODIUM [Suspect]
     Indication: OSTEOPOROSIS
     Dosage: 30MG ONCE IV
     Route: 042
     Dates: start: 20060616, end: 20060616
  2. LEVOTHYROXINE SODIUM [Concomitant]
  3. DAPSONE [Concomitant]
  4. HUMULIN 70/30 [Concomitant]
  5. SIMVASTATIN [Concomitant]
  6. LISINOPRIL [Concomitant]
  7. AZATHIOPRINE [Concomitant]
  8. PREDNISONE TAB [Concomitant]
  9. FLOMAX [Concomitant]
  10. PRAZOSIN HCL [Concomitant]
  11. CALCIUM/VITAMIN D [Concomitant]
  12. PAROXETINE HCL [Concomitant]
  13. LORAZEPAM [Concomitant]
  14. ASPIRIN [Concomitant]
  15. ALENDRONATE SODIUM [Concomitant]
  16. RISEDRONATE [Concomitant]

REACTIONS (18)
  - BONE DISORDER [None]
  - CANDIDIASIS [None]
  - FACIAL PAIN [None]
  - HYPOAESTHESIA FACIAL [None]
  - HYPOAESTHESIA ORAL [None]
  - INFECTION [None]
  - INFUSION RELATED REACTION [None]
  - JAW DISORDER [None]
  - NEUTROPHIL COUNT INCREASED [None]
  - OSTEONECROSIS [None]
  - PAIN IN JAW [None]
  - RASH [None]
  - RED BLOOD CELL SEDIMENTATION RATE INCREASED [None]
  - SOFT TISSUE DISORDER [None]
  - TENDERNESS [None]
  - TRISMUS [None]
  - WHITE BLOOD CELL COUNT INCREASED [None]
  - WOUND [None]
